FAERS Safety Report 11510186 (Version 1)
Quarter: 2015Q3

REPORT INFORMATION
  Report Type: Spontaneous
  Country: US (occurrence: US)
  Receive Date: 20150915
  Receipt Date: 20150915
  Transmission Date: 20151125
  Serious: No
  Sender: FDA-Public Use
  Company Number: US-JNJFOC-20150812920

PATIENT
  Age: 72 Year
  Sex: Female
  Weight: 104.33 kg

DRUGS (6)
  1. BUSPIRONE HCL [Concomitant]
     Active Substance: BUSPIRONE HYDROCHLORIDE
     Indication: ATRIAL FIBRILLATION
     Dosage: 10 YEARS
     Route: 065
  2. CITALOPRAM [Concomitant]
     Active Substance: CITALOPRAM HYDROBROMIDE
     Indication: DEPRESSION
     Dosage: 14 YEARS
     Route: 065
  3. TYLENOL EXTRA STRENGTH [Suspect]
     Active Substance: ACETAMINOPHEN
     Indication: ARTHRALGIA
     Dosage: AS NEEDED
     Route: 048
  4. BUSPIRONE HCL [Concomitant]
     Active Substance: BUSPIRONE HYDROCHLORIDE
     Indication: HYPERTENSION
     Dosage: 10 YEARS
     Route: 065
  5. WARFARIN [Concomitant]
     Active Substance: WARFARIN
     Indication: ATRIAL FIBRILLATION
     Dosage: 10 YEARS
     Route: 065
  6. TYLENOL EXTRA STRENGTH [Suspect]
     Active Substance: ACETAMINOPHEN
     Indication: OSTEOPENIA
     Dosage: AS NEEDED
     Route: 048

REACTIONS (4)
  - Self-medication [Unknown]
  - Drug ineffective [Unknown]
  - Musculoskeletal stiffness [Unknown]
  - Hypokinesia [Unknown]
